FAERS Safety Report 7534432-X (Version None)
Quarter: 2011Q2

REPORT INFORMATION
  Report Type: 
  Country: None (occurrence: None)
  Receive Date: 20110608
  Receipt Date: 20110601
  Transmission Date: 20111010
  Serious: Yes (Hospitalization, Other)
  Sender: FDA-Public Use
  Company Number: US-RB-028416-11

PATIENT
  Age: 34 Year
  Sex: Male

DRUGS (2)
  1. SUBOXONE [Suspect]
     Indication: PAIN
     Dosage: DOSING INFORMATION UNKNOWN
     Route: 065
  2. DILAUDID [Suspect]
     Indication: PRODUCT USED FOR UNKNOWN INDICATION
     Dosage: UNKNOWN DOSING DETAILS

REACTIONS (5)
  - HYPOKINESIA [None]
  - HOSPITALISATION [None]
  - VOMITING [None]
  - MALAISE [None]
  - OFF LABEL USE [None]
